FAERS Safety Report 15462379 (Version 1)
Quarter: 2018Q4

REPORT INFORMATION
  Report Type: Spontaneous
  Country: US (occurrence: US)
  Receive Date: 20181001
  Receipt Date: 20181001
  Transmission Date: 20190204
  Serious: Yes (Other)
  Sender: FDA-Public Use
  Company Number: None

PATIENT
  Age: 70 Year
  Sex: Male
  Weight: 103.5 kg

DRUGS (11)
  1. BENICAR [Concomitant]
     Active Substance: OLMESARTAN MEDOXOMIL
  2. FAMOTIDINE. [Concomitant]
     Active Substance: FAMOTIDINE
  3. FLECANIDE [Concomitant]
     Active Substance: FLECAINIDE
  4. ZIRTEC [Concomitant]
     Active Substance: CETIRIZINE HYDROCHLORIDE
  5. SINGULAIR [Concomitant]
     Active Substance: MONTELUKAST SODIUM
  6. PREDNISONE. [Concomitant]
     Active Substance: PREDNISONE
  7. MAGOX [Concomitant]
  8. AVADART [Concomitant]
  9. ASMANAX [Concomitant]
  10. PROVENGE [Suspect]
     Active Substance: SIPULEUCEL-T
     Indication: PROSTATE CANCER
     Dosage: ?          QUANTITY:1 INFUSION;OTHER FREQUENCY:EVERY 2 WEEKS FOR;?
     Route: 042
     Dates: start: 20180808, end: 20180820
  11. METFORMIN [Concomitant]
     Active Substance: METFORMIN HYDROCHLORIDE

REACTIONS (1)
  - Pruritus generalised [None]

NARRATIVE: CASE EVENT DATE: 20180820
